FAERS Safety Report 10362290 (Version 2)
Quarter: 2014Q3

REPORT INFORMATION
  Report Type: Spontaneous
  Country: NL (occurrence: NL)
  Receive Date: 20140805
  Receipt Date: 20140812
  Transmission Date: 20150326
  Serious: Yes (Hospitalization, Other)
  Sender: FDA-Public Use
  Company Number: NL-PFIZER INC-2014215606

PATIENT
  Age: 59 Year
  Sex: Male
  Weight: 90 kg

DRUGS (15)
  1. NADROPARIN [Concomitant]
     Active Substance: NADROPARIN
     Dosage: 2850 IU, 1X/DAY
  2. GABAPENTIN. [Suspect]
     Active Substance: GABAPENTIN
     Indication: HICCUPS
     Dosage: 400 MG, 3X/DAY
     Dates: start: 20140702
  3. METOPROLOL [Concomitant]
     Active Substance: METOPROLOL
     Dosage: 100 MG, 3X/DAY
  4. PREGABALIN. [Concomitant]
     Active Substance: PREGABALIN
     Dosage: 75 MG, 2X/DAY
     Dates: start: 20140701, end: 20140701
  5. PANTOPRAZOLE [Concomitant]
     Active Substance: PANTOPRAZOLE SODIUM
     Dosage: 40 MG, 1X/DAY
  6. VANCOMYCIN [Concomitant]
     Active Substance: VANCOMYCIN
     Dosage: 1000 MG, 3X/DAY
  7. CAPTOPRIL. [Concomitant]
     Active Substance: CAPTOPRIL
     Dosage: 25 MG, 3X/DAY
  8. XYLOMETAZOLINE [Concomitant]
     Active Substance: XYLOMETAZOLINE
     Dosage: 1 DF, 4X/DAY
  9. ZOPICLON [Concomitant]
     Active Substance: ZOPICLONE
     Dosage: 3.75 MG, 1X/DAY
  10. NIMODIPINE. [Concomitant]
     Active Substance: NIMODIPINE
     Dosage: 60 MG, 6X/DAY
  11. PREGABALIN. [Concomitant]
     Active Substance: PREGABALIN
     Dosage: 75 MG, 1X/DAY
     Dates: start: 20140702, end: 20140702
  12. REMIFENTANIL [Concomitant]
     Active Substance: REMIFENTANIL
     Dosage: 2MCG/KG/U CONTINUE
  13. GABAPENTIN. [Suspect]
     Active Substance: GABAPENTIN
     Dosage: 400 MG, 1X/DAY
     Dates: start: 20140709, end: 20140710
  14. PARACETAMOL [Suspect]
     Active Substance: ACETAMINOPHEN
     Dosage: 1000 MG, 4X/DAY
     Dates: end: 20140708
  15. AMIODARONE [Concomitant]
     Active Substance: AMIODARONE
     Dosage: 150 MG, 2 INJECTIONS
     Route: 042
     Dates: start: 20140705, end: 20140705

REACTIONS (3)
  - Toxicity to various agents [Unknown]
  - Off label use [Unknown]
  - Hepatitis [Recovering/Resolving]

NARRATIVE: CASE EVENT DATE: 20140710
